FAERS Safety Report 5031428-7 (Version None)
Quarter: 2006Q2

REPORT INFORMATION
  Report Type: 
  Country: None (occurrence: None)
  Receive Date: 20060621
  Receipt Date: 20060614
  Transmission Date: 20061013
  Serious: Yes (Disabling)
  Sender: FDA-Public Use
  Company Number: 2006PK01327

PATIENT
  Age: 19768 Day
  Sex: Female
  Weight: 64 kg

DRUGS (1)
  1. ASCOTOP [Suspect]
     Indication: MIGRAINE
     Route: 048
     Dates: start: 20030101, end: 20051222

REACTIONS (1)
  - MACULAR OEDEMA [None]
